FAERS Safety Report 22824439 (Version 6)
Quarter: 2023Q4

REPORT INFORMATION
  Report Type: Report from Study
  Country: CH (occurrence: CH)
  Receive Date: 20230815
  Receipt Date: 20231109
  Transmission Date: 20240110
  Serious: Yes (Death, Hospitalization, Other)
  Sender: FDA-Public Use
  Company Number: CH-PFM-2023-04556

PATIENT
  Sex: Female
  Weight: 56 kg

DRUGS (12)
  1. BRAFTOVI [Suspect]
     Active Substance: ENCORAFENIB
     Indication: Colorectal cancer
     Dosage: 300 MG/DAY
     Route: 048
     Dates: start: 20230526, end: 20230730
  2. BRAFTOVI [Suspect]
     Active Substance: ENCORAFENIB
     Dosage: UNK
     Route: 065
     Dates: start: 20230811
  3. CETUXIMAB [Suspect]
     Active Substance: CETUXIMAB
     Indication: Colorectal cancer
     Dosage: 510 MG/M2, WEEKLY (EVERY 7 DAYS) (LIQUID DILUTION)
     Route: 042
     Dates: start: 20230526, end: 20230717
  4. CETUXIMAB [Suspect]
     Active Substance: CETUXIMAB
     Dosage: UNK (LIQUID DILUTION)
     Route: 065
     Dates: start: 20230811
  5. PIPERACILLIN AND TAZOBACTAM [Concomitant]
     Active Substance: PIPERACILLIN SODIUM\TAZOBACTAM SODIUM
     Indication: Septic shock
     Dosage: 4.5 G
     Route: 042
     Dates: start: 20230704, end: 20230718
  6. PIPERACILLIN AND TAZOBACTAM [Concomitant]
     Active Substance: PIPERACILLIN SODIUM\TAZOBACTAM SODIUM
     Indication: Peritonitis bacterial
     Dosage: UNK, MONTHLY
  7. VANCOMYCIN LEDERLE [Concomitant]
     Indication: Septic shock
     Dosage: 1G, STRENGTH: 500 MG/-1000 MG
     Route: 042
     Dates: start: 20230709, end: 20230723
  8. VANCOMYCIN LEDERLE [Concomitant]
     Indication: Peritonitis bacterial
  9. METRONIDAZOLE [Concomitant]
     Active Substance: METRONIDAZOLE
     Indication: Septic shock
     Dosage: 500 MG, TID (3/DAY)
     Route: 048
     Dates: start: 20230719, end: 20230720
  10. METRONIDAZOLE [Concomitant]
     Active Substance: METRONIDAZOLE
     Indication: Peritonitis bacterial
  11. PREDNISONE [Concomitant]
     Active Substance: PREDNISONE
     Indication: Nausea
     Dosage: 20 MG
     Route: 048
  12. HALDOL [Concomitant]
     Active Substance: HALOPERIDOL
     Indication: Prophylaxis
     Dosage: 1 ML, PRN
     Route: 058
     Dates: start: 20230828, end: 20230902

REACTIONS (3)
  - Malaise [Fatal]
  - Back pain [Unknown]
  - Vomiting [Recovering/Resolving]

NARRATIVE: CASE EVENT DATE: 20230804
